FAERS Safety Report 9495191 (Version 1)
Quarter: 2013Q3

REPORT INFORMATION
  Report Type: Spontaneous
  Country: US (occurrence: US)
  Receive Date: 20130903
  Receipt Date: 20130903
  Transmission Date: 20140515
  Serious: Yes (Other)
  Sender: FDA-Public Use
  Company Number: US-UCBSA-096069

PATIENT
  Age: 50 Year
  Sex: Female

DRUGS (10)
  1. KEPPRA [Suspect]
     Indication: CONVULSION
     Dosage: 750 MG/4 DAILY
  2. KEPPRA [Suspect]
     Indication: CONVULSION
     Dosage: DOSE INCREASE, 1500 MG IN THE MORNING AND 1875 MG AT NIGHT
  3. TEGRETOL [Concomitant]
     Indication: CONVULSION
     Dosage: UNKNOWN DOSE
  4. TEGRETOL [Concomitant]
     Indication: CONVULSION
     Dosage: TAPERING DOSE AFTER KEPPRA START
  5. TEGRETOL [Concomitant]
     Indication: CONVULSION
  6. PHENOBARBITAL [Concomitant]
     Indication: CONVULSION
  7. PHENOBARBITAL [Concomitant]
     Indication: CONVULSION
     Dosage: TAPERING DOSE AFTER KEPPRA START
  8. TEMODAR [Concomitant]
     Indication: CONVULSION
     Dosage: 220 MG OR 150 MG/DOSE
     Dates: start: 201306
  9. ATIVAN [Concomitant]
  10. MIRALAX [Concomitant]

REACTIONS (4)
  - Epilepsy [Recovering/Resolving]
  - Sensory disturbance [Unknown]
  - Nausea [Recovered/Resolved]
  - Overdose [Unknown]
